FAERS Safety Report 4314823-0 (Version None)
Quarter: 2004Q1

REPORT INFORMATION
  Report Type: 
  Country: None (occurrence: None)
  Receive Date: 20040308
  Receipt Date: 20040223
  Transmission Date: 20041129
  Serious: Yes (Hospitalization)
  Sender: FDA-Public Use
  Company Number: HQWYE242423FEB04

PATIENT
  Age: 76 Year
  Sex: Male

DRUGS (2)
  1. OSTELUC 200 (ETODOLAC, TABLET) [Suspect]
     Indication: ARTHROPATHY
     Dosage: 400 MG PER DAY,  ORAL
     Route: 048
     Dates: start: 20031201, end: 20040207
  2. UNSPECIFIED GASTROINTESTINAL AGENT [Concomitant]

REACTIONS (1)
  - HEPATITIS ACUTE [None]
